FAERS Safety Report 8282879-9 (Version None)
Quarter: 2012Q2

REPORT INFORMATION
  Report Type: 
  Country: None (occurrence: None)
  Receive Date: 20120413
  Receipt Date: 20120404
  Transmission Date: 20120825
  Serious: Yes (Death, Hospitalization)
  Sender: FDA-Public Use
  Company Number: US-ACTELION-A-US2012-63397

PATIENT

DRUGS (5)
  1. VIAGRA [Concomitant]
  2. DIGOXIN [Concomitant]
  3. OXYGEN [Concomitant]
  4. COUMADIN [Concomitant]
  5. TRACLEER [Suspect]
     Indication: PULMONARY ARTERIAL HYPERTENSION
     Dosage: UNK
     Route: 048
     Dates: start: 20020328

REACTIONS (2)
  - CARDIAC FAILURE [None]
  - DEATH [None]
